FAERS Safety Report 9382969 (Version 1)
Quarter: 2013Q3

REPORT INFORMATION
  Report Type: Spontaneous
  Country: IT (occurrence: IT)
  Receive Date: 20130703
  Receipt Date: 20130703
  Transmission Date: 20140515
  Serious: Yes (Hospitalization)
  Sender: FDA-Public Use
  Company Number: CHPA2013IT008937

PATIENT
  Age: 20 Year
  Sex: Male

DRUGS (8)
  1. SINECOD TOSSE SEDATIVO [Suspect]
     Indication: OROPHARYNGEAL PAIN
     Dosage: 1 DF, QD
     Route: 048
     Dates: start: 20130206, end: 20130207
  2. SINECOD TOSSE SEDATIVO [Suspect]
     Indication: ARTHRALGIA
  3. SINECOD TOSSE SEDATIVO [Suspect]
     Indication: PYREXIA
  4. IBUPROFEN [Suspect]
     Indication: OROPHARYNGEAL PAIN
     Dosage: 400 MG, QD
     Route: 048
     Dates: start: 20130206, end: 20130207
  5. IBUPROFEN [Suspect]
     Indication: ARTHRALGIA
  6. IBUPROFEN [Suspect]
     Indication: PYREXIA
  7. OKI [Suspect]
     Indication: ARTHRALGIA
     Dosage: UNK, UNK
     Route: 048
     Dates: start: 20130205, end: 20130205
  8. OKI [Suspect]
     Indication: PYREXIA

REACTIONS (2)
  - Pruritus [Recovering/Resolving]
  - Purpura [Recovering/Resolving]
